FAERS Safety Report 7715998-3 (Version None)
Quarter: 2011Q3

REPORT INFORMATION
  Report Type: 
  Country: None (occurrence: None)
  Receive Date: 20110829
  Receipt Date: 20110819
  Transmission Date: 20111222
  Serious: Yes (Life-Threatening)
  Sender: FDA-Public Use
  Company Number: DE-TEVA-297439GER

PATIENT
  Age: 62 Year
  Sex: Male
  Weight: 76 kg

DRUGS (3)
  1. CIPROFLOXACIN [Suspect]
     Indication: DIVERTICULITIS
     Dosage: 1000 MILLIGRAM;
     Route: 048
     Dates: start: 20110217
  2. AMIODARONE HCL [Concomitant]
     Indication: VENTRICULAR EXTRASYSTOLES
     Dosage: 250 MILLIGRAM;
     Route: 048
     Dates: start: 20070827
  3. SOTALOL HCL [Concomitant]
     Indication: VENTRICULAR EXTRASYSTOLES
     Dosage: 160 MILLIGRAM;
     Route: 048
     Dates: start: 20070827

REACTIONS (1)
  - VENTRICULAR TACHYARRHYTHMIA [None]
